FAERS Safety Report 9735751 (Version 1)
Quarter: 2013Q4

REPORT INFORMATION
  Report Type: Spontaneous
  Country: US (occurrence: US)
  Receive Date: 20131206
  Receipt Date: 20131206
  Transmission Date: 20140711
  Serious: No
  Sender: FDA-Public Use
  Company Number: US-GILEAD-2009-0022681

PATIENT
  Sex: Female

DRUGS (14)
  1. LETAIRIS [Suspect]
     Indication: PULMONARY ARTERIAL HYPERTENSION
     Route: 048
     Dates: start: 20090530
  2. REVATIO [Concomitant]
  3. DYAZIDE [Concomitant]
  4. AMLODIPINE BESYLATE [Concomitant]
  5. NADOLOL [Concomitant]
  6. PLAQUENIL [Concomitant]
  7. PREDNISONE [Concomitant]
  8. LEVOTHYROXINE [Concomitant]
  9. KEPPRA [Concomitant]
  10. CITRUCEL [Concomitant]
  11. KLOR-CON M20 [Concomitant]
  12. MULTIVITAMIN [Concomitant]
  13. VITAMIN C [Concomitant]
  14. FOLIC ACID [Concomitant]

REACTIONS (1)
  - Pain in jaw [Unknown]
